FAERS Safety Report 25830827 (Version 1)
Quarter: 2025Q3

REPORT INFORMATION
  Report Type: Spontaneous
  Country: EU (occurrence: EU)
  Receive Date: 20250922
  Receipt Date: 20250922
  Transmission Date: 20251021
  Serious: Yes (Hospitalization, Other)
  Sender: AUROBINDO
  Company Number: EU-AFSSAPS-CF2025000424

PATIENT
  Age: 77 Year
  Sex: Female

DRUGS (2)
  1. CLARITHROMYCIN [Interacting]
     Active Substance: CLARITHROMYCIN
     Indication: Antibiotic therapy
     Route: 042
     Dates: start: 20241028, end: 20241102
  2. TACROLIMUS [Interacting]
     Active Substance: TACROLIMUS
     Indication: Dermatomyositis
     Dosage: 6 MILLIGRAM, ONCE A DAY
     Route: 048
     Dates: start: 20241101, end: 20241103

REACTIONS (2)
  - Acute kidney injury [Not Recovered/Not Resolved]
  - Prescribed overdose [Not Recovered/Not Resolved]

NARRATIVE: CASE EVENT DATE: 20241101
